FAERS Safety Report 15360737 (Version 2)
Quarter: 2018Q4

REPORT INFORMATION
  Report Type: Spontaneous
  Country: US (occurrence: US)
  Receive Date: 20180907
  Receipt Date: 20181005
  Transmission Date: 20190204
  Serious: Yes (Other)
  Sender: FDA-Public Use
  Company Number: US-EMD SERONO-9042094

PATIENT
  Sex: Female

DRUGS (1)
  1. REBIF [Suspect]
     Active Substance: INTERFERON BETA-1A
     Indication: PRODUCT USED FOR UNKNOWN INDICATION
     Route: 058

REACTIONS (7)
  - Panniculitis [Recovering/Resolving]
  - Injection site swelling [Unknown]
  - Lymphocyte count decreased [Not Recovered/Not Resolved]
  - Injection site erythema [Unknown]
  - Hypogammaglobulinaemia [Not Recovered/Not Resolved]
  - Injection site induration [Unknown]
  - Injection site pain [Unknown]
